FAERS Safety Report 6346646-5 (Version None)
Quarter: 2009Q3

REPORT INFORMATION
  Report Type: 
  Country: None (occurrence: None)
  Receive Date: 20090903
  Receipt Date: 20090825
  Transmission Date: 20100115
  Serious: Yes (Hospitalization)
  Sender: FDA-Public Use
  Company Number: WAES 0908BRA0059

PATIENT
  Age: 46 Year
  Sex: Male

DRUGS (10)
  1. ISENTRESS [Suspect]
     Indication: HIV INFECTION
     Dosage: 400 MG/BID, PO
     Route: 048
     Dates: start: 20080903
  2. TAB ETRAVININE [Suspect]
     Indication: HIV INFECTION
     Dosage: PO
     Route: 048
     Dates: start: 20070718
  3. LAMIVUDINE AND ZIDOVUDINE [Suspect]
     Indication: HIV INFECTION
     Dosage: PO
     Route: 048
  4. RITONAVIR [Suspect]
     Indication: HIV INFECTION
     Dosage: 100 MG/BID, PO
     Route: 048
     Dates: start: 20070718
  5. CYANOCOBALAMIN [Concomitant]
  6. DARUNAVIR [Concomitant]
  7. DICLOFENAC SODIUM [Concomitant]
  8. PYRIDOXINE [Concomitant]
  9. SULFAMETHOXASOLE/TRIMETHOPRIM [Concomitant]
  10. THIAMINE HYDROCHLORIDE [Concomitant]

REACTIONS (2)
  - CD4 LYMPHOCYTES DECREASED [None]
  - MESENTERIC VEIN THROMBOSIS [None]
